FAERS Safety Report 24571040 (Version 1)
Quarter: 2024Q4

REPORT INFORMATION
  Report Type: Report from Study
  Country: BE (occurrence: BE)
  Receive Date: 20241101
  Receipt Date: 20241101
  Transmission Date: 20250114
  Serious: Yes (Hospitalization, Other)
  Sender: ABBVIE
  Company Number: BE-ABBVIE-5720425

PATIENT
  Age: 63 Year
  Sex: Female
  Weight: 46 kg

DRUGS (16)
  1. CARBIDOPA\LEVODOPA [Suspect]
     Active Substance: CARBIDOPA\LEVODOPA
     Indication: Parkinson^s disease
     Dosage: MD: 7.0 ML, CD: 2.9ML/H, ED: 2.00ML DURING 16 HOURS
     Route: 050
     Dates: start: 20231221, end: 20231228
  2. CARBIDOPA\LEVODOPA [Suspect]
     Active Substance: CARBIDOPA\LEVODOPA
     Dosage: MD: 6.5 ML, CD: 3.1 ML/H, ED: 3.00ML DURING 16 HOURS
     Dates: start: 20240116, end: 20240411
  3. CARBIDOPA\LEVODOPA [Suspect]
     Active Substance: CARBIDOPA\LEVODOPA
     Dosage: MD: 6.0 ML, CD: 2.0 ML/H, ED: 2.60ML DURING 16 HOURS
     Route: 050
     Dates: start: 20240703
  4. CARBIDOPA\LEVODOPA [Suspect]
     Active Substance: CARBIDOPA\LEVODOPA
     Dosage: MD: 6.5 ML, CD: 3.2 ML/H, ED: 3.00ML DURING 16 HOURS
     Route: 050
     Dates: start: 20240113, end: 20240116
  5. CARBIDOPA\LEVODOPA [Suspect]
     Active Substance: CARBIDOPA\LEVODOPA
     Dosage: MD: 6.5 ML, CD: 3.2 ML/H, ED: 3.00ML DURING 16 HOURS
     Route: 050
     Dates: start: 20240112, end: 20240116
  6. CARBIDOPA\LEVODOPA [Suspect]
     Active Substance: CARBIDOPA\LEVODOPA
     Dosage: MD: 6.5 ML, CD: 3.1 ML/H, ED: 3.00ML DURING 16 HOURS
     Route: 050
     Dates: start: 20240117, end: 20240411
  7. CARBIDOPA\LEVODOPA [Suspect]
     Active Substance: CARBIDOPA\LEVODOPA
     Dosage: MD: 6.5 ML, CD: 2.7 ML/H, ED: 3.00ML DURING 16 HOURS
     Route: 050
     Dates: start: 20240411, end: 20240703
  8. CARBIDOPA\LEVODOPA [Suspect]
     Active Substance: CARBIDOPA\LEVODOPA
     Dosage: LAST ADMIN DATE: 2023
     Route: 050
     Dates: start: 20230821
  9. CARBIDOPA\LEVODOPA [Suspect]
     Active Substance: CARBIDOPA\LEVODOPA
     Dosage: MD: 7.0 ML, CD: 2.9ML/H, ED: 2.00ML DURING 16 HOURS
     Route: 050
     Dates: start: 20231220, end: 20231228
  10. CARBIDOPA\LEVODOPA [Suspect]
     Active Substance: CARBIDOPA\LEVODOPA
     Dosage: MD: 6.0 ML, CD: 2.9ML/H, ED: 2.00ML DURING 16 HOURS
     Route: 050
     Dates: start: 20231229, end: 20240109
  11. CARBIDOPA\LEVODOPA [Suspect]
     Active Substance: CARBIDOPA\LEVODOPA
     Dosage: MD: 6.5 ML, CD: 2.7 ML/H, ED: 3.00ML DURING 16 HOURS
     Route: 050
     Dates: start: 20240412, end: 20240703
  12. CARBIDOPA\LEVODOPA [Suspect]
     Active Substance: CARBIDOPA\LEVODOPA
     Dosage: MD: 6.0 ML, CD: 2.9ML/H, ED: 2.00ML DURING 16 HOURS
     Route: 050
     Dates: start: 20231228, end: 20240109
  13. CARBIDOPA\LEVODOPA [Suspect]
     Active Substance: CARBIDOPA\LEVODOPA
     Dosage: MD: 8.0 ML, CD: 2.9ML/H, ED: 2.00ML DURING 16 HOURS
     Route: 050
     Dates: start: 20231108, end: 20231220
  14. CARBIDOPA\LEVODOPA [Suspect]
     Active Substance: CARBIDOPA\LEVODOPA
     Dosage: MD: 6.5 ML, ED: 3.00ML DURING 16 HOURS
     Route: 050
     Dates: start: 20240109, end: 20240112
  15. CARBIDOPA\LEVODOPA [Suspect]
     Active Substance: CARBIDOPA\LEVODOPA
     Dosage: MD: 6.5 ML, ED: 3.00ML DURING 16 HOURS
     Route: 050
     Dates: start: 20240110, end: 20240112
  16. AMITRIPTYLINE HYDROCHLORIDE [Concomitant]
     Active Substance: AMITRIPTYLINE HYDROCHLORIDE
     Indication: Headache
     Dosage: STRENGTH TEXT: 10 MG

REACTIONS (10)
  - Shoulder operation [Unknown]
  - Decreased appetite [Unknown]
  - Stoma site discharge [Unknown]
  - On and off phenomenon [Not Recovered/Not Resolved]
  - Stoma site hypergranulation [Not Recovered/Not Resolved]
  - Dyskinesia [Not Recovered/Not Resolved]
  - Unevaluable event [Unknown]
  - Dystonia [Recovering/Resolving]
  - Tremor [Not Recovered/Not Resolved]
  - Mobility decreased [Recovering/Resolving]

NARRATIVE: CASE EVENT DATE: 20240401
